FAERS Safety Report 7482016-4 (Version None)
Quarter: 2011Q2

REPORT INFORMATION
  Report Type: 
  Country: None (occurrence: None)
  Receive Date: 20110516
  Receipt Date: 20110510
  Transmission Date: 20111010
  Serious: Yes (Hospitalization, Other)
  Sender: FDA-Public Use
  Company Number: US-BRISTOL-MYERS SQUIBB COMPANY-15661846

PATIENT
  Age: 70 Year
  Sex: Female
  Weight: 59 kg

DRUGS (17)
  1. CISPLATIN [Suspect]
     Indication: MULTIPLE MYELOMA
     Route: 042
     Dates: start: 20101123, end: 20101126
  2. ZITHROMAX [Concomitant]
     Indication: UPPER RESPIRATORY TRACT INFECTION
     Dates: start: 20101124, end: 20101126
  3. ETOPOSIDE [Suspect]
     Indication: MULTIPLE MYELOMA
     Route: 042
     Dates: start: 20101123, end: 20101126
  4. DEXAMETHASONE [Suspect]
     Indication: MULTIPLE MYELOMA
     Dosage: 25OCT10-04NOV10;20MG;DAY 8,11,15,18, EVERY 3 WEEKS(ORAL)
     Route: 042
     Dates: start: 20101123, end: 20101127
  5. BORTEZOMIB [Concomitant]
     Indication: MULTIPLE MYELOMA
     Dosage: DAY 8,11,15,18, EVERY 3 WEEKS
     Route: 042
     Dates: start: 20101025, end: 20101104
  6. OXYCODONE HCL [Concomitant]
     Indication: PAIN
     Dates: start: 20101025
  7. PROCHLORPERAZINE MALEATE [Concomitant]
     Indication: NAUSEA
     Dates: start: 20100108
  8. CYCLOPHOSPHAMIDE [Suspect]
     Indication: MULTIPLE MYELOMA
     Route: 042
     Dates: start: 20101123, end: 20101126
  9. FAMOTIDINE [Concomitant]
     Indication: GASTROOESOPHAGEAL REFLUX DISEASE
     Dates: start: 20100108
  10. TYLENOL W/ CODEINE NO. 3 [Concomitant]
     Indication: PAIN
     Dates: start: 20101018, end: 20101130
  11. FLUCONAZOLE [Concomitant]
     Indication: INFECTION
     Dosage: INJECTION
     Dates: start: 20100108
  12. LIDOCAINE [Concomitant]
     Indication: PAIN
     Dates: start: 20101018
  13. ZOLEDRONIC ACID [Concomitant]
     Indication: BONE DISORDER
     Dates: start: 20090101
  14. LEVAQUIN [Concomitant]
     Indication: URINARY TRACT INFECTION
     Dates: start: 20101117, end: 20101122
  15. DARBEPOETIN ALFA [Concomitant]
     Indication: ANAEMIA
     Dates: start: 20100108
  16. ACYCLOVIR [Concomitant]
     Indication: INFECTION
     Dosage: INJECTION
     Dates: start: 20100108
  17. BICITRA [Concomitant]
     Indication: PH URINE DECREASED
     Dates: start: 20101122, end: 20101130

REACTIONS (4)
  - CONFUSIONAL STATE [None]
  - PNEUMONIA [None]
  - ASTHENIA [None]
  - PANCYTOPENIA [None]
